FAERS Safety Report 19707923 (Version 1)
Quarter: 2021Q3

REPORT INFORMATION
  Report Type: Spontaneous
  Country: US (occurrence: US)
  Receive Date: 20210809
  Receipt Date: 20210809
  Transmission Date: 20211014
  Serious: Yes (Other)
  Sender: FDA-Public Use
  Company Number: SAER 2021-001

PATIENT
  Age: 41 Year
  Sex: Female

DRUGS (1)
  1. KIDS CANDIDA RELIEF (HOMEOPATHICS) [Suspect]
     Active Substance: HOMEOPATHICS
     Route: 048

REACTIONS (3)
  - Gastric disorder [None]
  - Gastrointestinal bacterial overgrowth [None]
  - Fatigue [None]

NARRATIVE: CASE EVENT DATE: 20210722
